FAERS Safety Report 7574814-3 (Version None)
Quarter: 2011Q2

REPORT INFORMATION
  Report Type: 
  Country: None (occurrence: None)
  Receive Date: 20110627
  Receipt Date: 20110608
  Transmission Date: 20111010
  Serious: Yes (Death, Other)
  Sender: FDA-Public Use
  Company Number: US-BAYER-201041700NA

PATIENT
  Age: 60 Year
  Sex: Female
  Weight: 97.959 kg

DRUGS (14)
  1. METOPROLOL TARTRATE [Concomitant]
     Indication: HYPERTENSION
     Dosage: DAILY
  2. PAPAVERINE [Concomitant]
     Dosage: 60 MG, UNK
     Dates: start: 19990729
  3. CILOSTAZOL [Concomitant]
     Indication: PERIPHERAL VASCULAR DISORDER
     Dosage: DAILY
  4. JANUMET [Concomitant]
     Dosage: DAILY
  5. CLONIDINE [Concomitant]
     Dosage: DAILY
  6. PLAVIX [Concomitant]
     Dosage: DAILY
  7. ASPIRIN [Concomitant]
     Dosage: DAILY
  8. FUROSEMIDE [Concomitant]
     Indication: DIURETIC THERAPY
     Dosage: DAILY
  9. RED BLOOD CELLS [Concomitant]
     Dosage: 2 UNITS
     Route: 042
     Dates: start: 19990729
  10. HESPAN IN EXCEL PLASTIC CONTAINER [Concomitant]
     Dosage: 500 CC
     Dates: start: 19990729
  11. TRASYLOL [Suspect]
     Indication: CORONARY ARTERY BYPASS
     Dosage: 200ML PUMP PRIME
     Route: 042
     Dates: start: 19990729
  12. LISINOPRIL [Concomitant]
     Indication: HYPERTENSION
     Dosage: DAILY
  13. PROTAMINE SULFATE [Concomitant]
     Dosage: 400 MG, UNK
     Route: 042
     Dates: start: 19990729
  14. HEPARIN [Concomitant]
     Dosage: 400 MG, UNK
     Route: 042
     Dates: start: 19990729

REACTIONS (14)
  - CARDIAC FAILURE [None]
  - EMOTIONAL DISTRESS [None]
  - PAIN [None]
  - MULTI-ORGAN FAILURE [None]
  - STRESS [None]
  - FEAR [None]
  - RENAL IMPAIRMENT [None]
  - RENAL INJURY [None]
  - UNEVALUABLE EVENT [None]
  - ANXIETY [None]
  - INJURY [None]
  - RENAL FAILURE [None]
  - DEATH [None]
  - CEREBROVASCULAR ACCIDENT [None]
